FAERS Safety Report 19008519 (Version 2)
Quarter: 2021Q3

REPORT INFORMATION
  Report Type: Other
  Country: CN (occurrence: CN)
  Receive Date: 20210315
  Receipt Date: 20210825
  Transmission Date: 20211014
  Serious: Yes (Other)
  Sender: FDA-Public Use
  Company Number: CN-ROCHE-2782183

PATIENT

DRUGS (2)
  1. CAPECITABINE. [Suspect]
     Active Substance: CAPECITABINE
     Indication: RECTAL CANCER
     Route: 065
  2. OXALIPLATIN. [Suspect]
     Active Substance: OXALIPLATIN
     Indication: RECTAL CANCER
     Route: 065

REACTIONS (7)
  - Leukopenia [Unknown]
  - Anaemia [Unknown]
  - Proctitis [Unknown]
  - Radiation skin injury [Unknown]
  - Flatulence [Unknown]
  - Diarrhoea [Unknown]
  - Fatigue [Unknown]
